FAERS Safety Report 13341814 (Version 1)
Quarter: 2017Q1

REPORT INFORMATION
  Report Type: Spontaneous
  Country: US (occurrence: US)
  Receive Date: 20170316
  Receipt Date: 20170316
  Transmission Date: 20170428
  Serious: Yes (Hospitalization)
  Sender: FDA-Public Use
  Company Number: None

PATIENT
  Age: 63 Year
  Sex: Female
  Weight: 49.53 kg

DRUGS (2)
  1. PARAPLATIN [Suspect]
     Active Substance: CARBOPLATIN
     Indication: BREAST CANCER
     Dosage: DOSE - AUC 6
     Route: 042
     Dates: start: 20170303
  2. TAXOTERE [Suspect]
     Active Substance: DOCETAXEL
     Indication: BREAST CANCER
     Dosage: DOSE 75 MG/M2
     Route: 042
     Dates: start: 20170303

REACTIONS (5)
  - Vertigo [None]
  - Gait disturbance [None]
  - Nausea [None]
  - Dehydration [None]
  - Orthostatic hypotension [None]

NARRATIVE: CASE EVENT DATE: 20170312
